FAERS Safety Report 4576390-6 (Version None)
Quarter: 2005Q1

REPORT INFORMATION
  Report Type: 
  Country: None (occurrence: None)
  Receive Date: 20050119
  Receipt Date: 20040720
  Transmission Date: 20050727
  Serious: Yes (Other)
  Sender: FDA-Public Use
  Company Number: A03200402443

PATIENT

DRUGS (5)
  1. PLAVIX [Suspect]
     Indication: CARDIAC OPERATION
     Dosage: ORAL
     Route: 048
  2. PLAVIX [Suspect]
     Indication: STENT PLACEMENT
     Dosage: ORAL
     Route: 048
  3. ABCIXIMAB [Concomitant]
  4. HEPARIN [Concomitant]
  5. ACETYLSALICYLIC ACID SRT [Concomitant]

REACTIONS (3)
  - PLATELET COUNT DECREASED [None]
  - PYREXIA [None]
  - RASH [None]
